FAERS Safety Report 8950671 (Version 2)
Quarter: 2013Q1

REPORT INFORMATION
  Report Type: Report from Study
  Country: CA (occurrence: CA)
  Receive Date: 20121207
  Receipt Date: 20130131
  Transmission Date: 20140127
  Serious: Yes (Other)
  Sender: FDA-Public Use
  Company Number: CA-JNJFOC-20121113358

PATIENT
  Sex: Female
  Weight: 75.4 kg

DRUGS (4)
  1. REMICADE [Suspect]
     Indication: CROHN^S DISEASE
     Route: 042
     Dates: start: 2012
  2. REMICADE [Suspect]
     Indication: CROHN^S DISEASE
     Route: 042
     Dates: start: 2011
  3. BUPROPION [Concomitant]
     Route: 065
  4. AMITRIPTYLINE [Concomitant]
     Route: 065

REACTIONS (4)
  - Urinary fistula [Not Recovered/Not Resolved]
  - Cystitis [Not Recovered/Not Resolved]
  - Blood urine present [Not Recovered/Not Resolved]
  - Obstruction [Recovered/Resolved]
